FAERS Safety Report 4630270-6 (Version None)
Quarter: 2005Q2

REPORT INFORMATION
  Report Type: 
  Country: None (occurrence: None)
  Receive Date: 20050406
  Receipt Date: 20050322
  Transmission Date: 20051028
  Serious: Yes (Hospitalization)
  Sender: FDA-Public Use
  Company Number: GBS050216748

PATIENT
  Age: 49 Year
  Sex: Male

DRUGS (3)
  1. HUMALOG [Suspect]
     Indication: DIABETES MELLITUS
     Dosage: 100 U DAY
     Dates: start: 20030101
  2. ENALAPRIL [Concomitant]
  3. IRBESARTAN [Concomitant]

REACTIONS (3)
  - INJECTION SITE MASS [None]
  - PAIN [None]
  - PHARMACEUTICAL PRODUCT COMPLAINT [None]
